FAERS Safety Report 7056548-7 (Version None)
Quarter: 2010Q4

REPORT INFORMATION
  Report Type: 
  Country: None (occurrence: None)
  Receive Date: 20101021
  Receipt Date: 20101013
  Transmission Date: 20110411
  Serious: Yes (Disabling)
  Sender: FDA-Public Use
  Company Number: FR-GILEAD-2010-0032454

PATIENT
  Sex: Male

DRUGS (4)
  1. TRUVADA [Suspect]
     Indication: HIV INFECTION
     Dates: start: 20100101, end: 20100318
  2. KALETRA [Concomitant]
  3. VIREAD [Concomitant]
     Indication: HIV INFECTION
  4. LAMIVUDINE (EPIVIR HBV) [Concomitant]

REACTIONS (1)
  - JOINT LOCK [None]
